FAERS Safety Report 24967626 (Version 1)
Quarter: 2025Q1

REPORT INFORMATION
  Report Type: Spontaneous
  Country: US (occurrence: US)
  Receive Date: 20250214
  Receipt Date: 20250214
  Transmission Date: 20250408
  Serious: Yes (Other)
  Sender: TEVA
  Company Number: US-TEVA-VS-3295614

PATIENT
  Age: 53 Year
  Sex: Female

DRUGS (2)
  1. ESTRADIOL [Suspect]
     Active Substance: ESTRADIOL
     Indication: Menopausal symptoms
     Route: 062
  2. SYNTHROID [Concomitant]
     Active Substance: LEVOTHYROXINE SODIUM
     Indication: Product used for unknown indication

REACTIONS (6)
  - Haemorrhage [Not Recovered/Not Resolved]
  - Heavy menstrual bleeding [Not Recovered/Not Resolved]
  - Haemoglobin decreased [Unknown]
  - Hot flush [Unknown]
  - Hysterectomy [Unknown]
  - Colonoscopy [Unknown]

NARRATIVE: CASE EVENT DATE: 20240101
